FAERS Safety Report 24352017 (Version 1)
Quarter: 2024Q3

REPORT INFORMATION
  Report Type: Report from Study
  Country: AT (occurrence: AT)
  Receive Date: 20240923
  Receipt Date: 20240923
  Transmission Date: 20241016
  Serious: No
  Sender: ROCHE
  Company Number: AT-ROCHE-3200982

PATIENT
  Age: 82 Year
  Sex: Female
  Weight: 58.0 kg

DRUGS (15)
  1. HERCEPTIN [Suspect]
     Active Substance: TRASTUZUMAB
     Indication: HER2 positive breast cancer
     Dosage: FREQUENCY: Q3W - EVERY 3 WEEKS MOST RECENT DOSE PRIOR TO THE EVENT:21/SEP/2018
     Route: 041
     Dates: start: 20180810, end: 20180810
  2. HERCEPTIN [Suspect]
     Active Substance: TRASTUZUMAB
     Route: 041
     Dates: start: 20180921, end: 20181106
  3. PERJETA [Suspect]
     Active Substance: PERTUZUMAB
     Indication: HER2 positive breast cancer
     Dosage: MOST RECENT DOSE PRIOR TO THE EVENT: 21/SEP/2018
     Route: 042
     Dates: start: 20180810, end: 20180810
  4. PERJETA [Suspect]
     Active Substance: PERTUZUMAB
     Route: 042
     Dates: start: 20180921, end: 20190201
  5. DENOSUMAB [Suspect]
     Active Substance: DENOSUMAB
     Indication: HER2 positive breast cancer
     Dosage: Q4W - EVERY 4 WEEKS
     Route: 058
     Dates: start: 20181012
  6. LETROZOLE [Suspect]
     Active Substance: LETROZOLE
     Indication: HER2 positive breast cancer
     Dosage: O.D. - ONCE DAILY
     Route: 048
     Dates: start: 20181029
  7. HERCEPTIN [Suspect]
     Active Substance: TRASTUZUMAB
     Indication: HER2 positive breast cancer
     Route: 058
     Dates: start: 20220928
  8. GLUCOPHAGE [Concomitant]
     Active Substance: METFORMIN HYDROCHLORIDE
     Dosage: ONGOING = CHECKED
  9. METOPROLOL [Concomitant]
     Active Substance: METOPROLOL
     Dosage: ONGOING = CHECKED
  10. LEVOCETIRIZINE DIHYDROCHLORIDE [Concomitant]
     Active Substance: LEVOCETIRIZINE DIHYDROCHLORIDE
     Dosage: ONGOING = CHECKED
  11. PASPERTIN [Concomitant]
     Indication: Nausea
     Dosage: ONGOING = CHECKED
     Dates: start: 20181029
  12. AMLODIPINE BESYLATE [Concomitant]
     Active Substance: AMLODIPINE BESYLATE
     Dosage: ONGOING = CHECKED
     Dates: start: 20181215
  13. CIPRALEX [Concomitant]
     Active Substance: ESCITALOPRAM OXALATE
     Dosage: ONGOING = CHECKED
     Dates: start: 20190115
  14. PANTOPRAZOLE SODIUM [Concomitant]
     Active Substance: PANTOPRAZOLE SODIUM
     Indication: Abdominal pain
     Dosage: ONGOING = CHECKED
     Dates: start: 20190405
  15. RIVASTIGMINE [Concomitant]
     Active Substance: RIVASTIGMINE
     Dosage: ONGOING = CHECKED
     Dates: start: 20211009

REACTIONS (1)
  - General physical health deterioration [Recovered/Resolved]

NARRATIVE: CASE EVENT DATE: 20220928
